FAERS Safety Report 12144267 (Version 1)
Quarter: 2016Q1

REPORT INFORMATION
  Report Type: Spontaneous
  Country: US (occurrence: None)
  Receive Date: 20160303
  Receipt Date: 20160303
  Transmission Date: 20160526
  Serious: Yes (Hospitalization)
  Sender: FDA-Public Use
  Company Number: None

PATIENT
  Age: 57 Year
  Sex: Male
  Weight: 92 kg

DRUGS (1)
  1. RIBAVIRIN. [Suspect]
     Active Substance: RIBAVIRIN
     Indication: HEPATITIS C
     Route: 048
     Dates: start: 20151012, end: 20160205

REACTIONS (6)
  - Anaemia macrocytic [None]
  - Fatigue [None]
  - Hypertension [None]
  - Type 2 diabetes mellitus [None]
  - Epilepsy [None]
  - Chest pain [None]

NARRATIVE: CASE EVENT DATE: 20160115
